FAERS Safety Report 6732641-0 (Version None)
Quarter: 2010Q2

REPORT INFORMATION
  Report Type: 
  Country: None (occurrence: None)
  Receive Date: 20100519
  Receipt Date: 20100517
  Transmission Date: 20101027
  Serious: Yes (Life-Threatening, Other)
  Sender: FDA-Public Use
  Company Number: CN-ROXANE LABORATORIES, INC.-2010-RO-00583RO

PATIENT
  Age: 51 Year
  Sex: Female
  Weight: 57 kg

DRUGS (8)
  1. LIDOCAINE [Suspect]
     Indication: LOCAL ANAESTHESIA
     Dosage: 18 ML
  2. PROPOFOL [Suspect]
     Indication: INDUCTION OF ANAESTHESIA
     Dosage: 150 MG
  3. FENTANYL [Suspect]
     Indication: INDUCTION AND MAINTENANCE OF ANAESTHESIA
     Dosage: 0.2 MG
  4. FENTANYL [Suspect]
     Dosage: 0.1 MG
  5. ISOFLURANE [Suspect]
     Indication: MAINTENANCE OF ANAESTHESIA
     Route: 055
  6. ROCURONIUM BROMIDE [Suspect]
     Indication: NEUROMUSCULAR BLOCKADE
  7. EPINEPHRINE [Suspect]
     Dosage: 90 MCG
  8. EPINEPHRINE [Suspect]
     Dosage: 1 MG

REACTIONS (4)
  - CARDIAC ARREST [None]
  - HEART RATE INCREASED [None]
  - MEAN ARTERIAL PRESSURE DECREASED [None]
  - VENTRICULAR FIBRILLATION [None]
